FAERS Safety Report 11655444 (Version 1)
Quarter: 2015Q4

REPORT INFORMATION
  Report Type: Spontaneous
  Country: US (occurrence: US)
  Receive Date: 20151023
  Receipt Date: 20151023
  Transmission Date: 20160304
  Serious: Yes (Other)
  Sender: FDA-Public Use
  Company Number: US-BAYER-2015-446449

PATIENT
  Age: 35 Year
  Sex: Female

DRUGS (4)
  1. CIPRO [Suspect]
     Active Substance: CIPROFLOXACIN HYDROCHLORIDE
     Indication: ABDOMINAL PAIN UPPER
     Dosage: UNK
     Dates: start: 201208, end: 201208
  2. METRONIDAZOLE. [Concomitant]
     Active Substance: METRONIDAZOLE
     Indication: DIARRHOEA
     Dosage: UNK
     Dates: start: 201208
  3. CIPRO [Suspect]
     Active Substance: CIPROFLOXACIN HYDROCHLORIDE
     Indication: DIARRHOEA
  4. METRONIDAZOLE. [Concomitant]
     Active Substance: METRONIDAZOLE
     Indication: ABDOMINAL PAIN UPPER
     Dosage: UNK
     Dates: start: 201208

REACTIONS (25)
  - Arthralgia [None]
  - Muscular weakness [None]
  - Pain [None]
  - Activities of daily living impaired [None]
  - Palpitations [None]
  - Tendon pain [None]
  - Joint swelling [None]
  - Hyperhidrosis [None]
  - Headache [None]
  - Arthralgia [None]
  - Myalgia [None]
  - Chest discomfort [None]
  - Musculoskeletal stiffness [None]
  - Burning sensation [None]
  - Dizziness [None]
  - Discomfort [None]
  - Blood pressure increased [None]
  - Dyspnoea [None]
  - Neuropathy peripheral [None]
  - Muscle disorder [None]
  - Neck pain [None]
  - Arthritis [None]
  - Joint effusion [None]
  - Chills [None]
  - Nausea [None]

NARRATIVE: CASE EVENT DATE: 201208
